FAERS Safety Report 15530697 (Version 1)
Quarter: 2018Q4

REPORT INFORMATION
  Report Type: Spontaneous
  Country: SE (occurrence: SE)
  Receive Date: 20181018
  Receipt Date: 20181018
  Transmission Date: 20190205
  Serious: Yes (Death, Hospitalization, Other)
  Sender: FDA-Public Use
  Company Number: SE-009507513-1809SWE003132

PATIENT
  Age: 2 Year
  Sex: Male
  Weight: 13.7 kg

DRUGS (5)
  1. KEYTRUDA [Suspect]
     Active Substance: PEMBROLIZUMAB
     Indication: RHABDOID TUMOUR OF THE KIDNEY
     Dosage: 23 MG, ONCE
     Dates: start: 20180815, end: 20180828
  2. FRAGMIN [Concomitant]
     Active Substance: DALTEPARIN SODIUM
     Indication: THROMBOSIS PROPHYLAXIS
     Dosage: 2500 IU, QD
     Route: 058
     Dates: start: 201804, end: 20180828
  3. ZOVIRAX [Concomitant]
     Active Substance: ACYCLOVIR
     Indication: PROPHYLAXIS
     Dosage: 3 ML, QID; UNITS RPEORTED AS: MG/ML
     Route: 048
     Dates: start: 20180815, end: 20180828
  4. OXYNORM [Concomitant]
     Active Substance: OXYCODONE HYDROCHLORIDE
     Indication: PAIN
     Dosage: 1.5 ML, QID; UNITS REPORTED AS: MG/ML
     Route: 048
     Dates: start: 20180813
  5. CEFTAZIDIME. [Concomitant]
     Active Substance: CEFTAZIDIME
     Indication: FEBRILE NEUTROPENIA
     Dosage: 4.1 ML, QID; UNITS REPORTED AS: MG/ML
     Route: 042
     Dates: start: 20180813, end: 20180820

REACTIONS (7)
  - Product use in unapproved indication [Unknown]
  - Dyspnoea [Not Recovered/Not Resolved]
  - Colitis [Recovered/Resolved]
  - Product use issue [Unknown]
  - Malignant neoplasm progression [Unknown]
  - Death [Fatal]
  - Abdominal pain [Unknown]

NARRATIVE: CASE EVENT DATE: 20180815
